FAERS Safety Report 7128692-7 (Version None)
Quarter: 2010Q4

REPORT INFORMATION
  Report Type: 
  Country: None (occurrence: None)
  Receive Date: 20101130
  Receipt Date: 20101125
  Transmission Date: 20110411
  Serious: Yes (Hospitalization)
  Sender: FDA-Public Use
  Company Number: CO-ROCHE-738278

PATIENT
  Sex: Male

DRUGS (1)
  1. ACTEMRA [Suspect]
     Indication: RHEUMATOID ARTHRITIS
     Dosage: RECENT INFUSIONS PRIOR TO EVENT: 29 JUL 2010 AND 27 AUG 2010
     Route: 042
     Dates: start: 20100625

REACTIONS (2)
  - ABSCESS [None]
  - DYSPNOEA [None]
